FAERS Safety Report 21169665 (Version 1)
Quarter: 2022Q3

REPORT INFORMATION
  Report Type: Spontaneous
  Country: IL (occurrence: IL)
  Receive Date: 20220804
  Receipt Date: 20220804
  Transmission Date: 20221027
  Serious: Yes (Other)
  Sender: FDA-Public Use
  Company Number: IL-BRISTOL-MYERS SQUIBB COMPANY-2022-080206

PATIENT
  Age: 50 Year
  Sex: Female

DRUGS (1)
  1. ZEPOSIA [Suspect]
     Active Substance: OZANIMOD HYDROCHLORIDE
     Indication: Multiple sclerosis
     Dosage: DOSE : UNAV;     FREQ : UNAV
     Route: 065
     Dates: start: 202203

REACTIONS (3)
  - Rash [Unknown]
  - Erythema [Unknown]
  - Vasculitis [Unknown]

NARRATIVE: CASE EVENT DATE: 20220711
